FAERS Safety Report 15577549 (Version 2)
Quarter: 2018Q4

REPORT INFORMATION
  Report Type: Spontaneous
  Country: AU (occurrence: AU)
  Receive Date: 20181102
  Receipt Date: 20181105
  Transmission Date: 20190205
  Serious: Yes (Hospitalization, Other)
  Sender: FDA-Public Use
  Company Number: AU-009507513-1810AUS002621

PATIENT
  Age: 66 Year
  Sex: Female

DRUGS (2)
  1. ZEPATIER [Suspect]
     Active Substance: ELBASVIR\GRAZOPREVIR
     Dosage: UNK
     Route: 048
     Dates: start: 201808, end: 201810
  2. RIVAROXABAN [Interacting]
     Active Substance: RIVAROXABAN
     Dosage: UNK

REACTIONS (4)
  - Acute kidney injury [Unknown]
  - Embolism [Unknown]
  - Renal infarct [Unknown]
  - Drug interaction [Unknown]

NARRATIVE: CASE EVENT DATE: 201810
